FAERS Safety Report 4667343-8 (Version None)
Quarter: 2005Q2

REPORT INFORMATION
  Report Type: 
  Country: None (occurrence: None)
  Receive Date: 20050520
  Receipt Date: 20041015
  Transmission Date: 20051028
  Serious: Yes (Other)
  Sender: FDA-Public Use
  Company Number: PHEH2004US11150

PATIENT
  Age: 55 Year
  Sex: Female
  Weight: 68 kg

DRUGS (7)
  1. ZOMETA [Suspect]
     Indication: METASTASES TO BONE
     Dosage: 4MG Q4W
     Route: 042
     Dates: start: 20030701, end: 20041004
  2. FEMARA [Concomitant]
     Indication: BREAST CANCER
     Dosage: 2.5 MG, QD
     Dates: start: 20030501, end: 20030601
  3. FASLODEX [Concomitant]
     Indication: BREAST CANCER
     Dosage: 250MG Q4W
     Dates: start: 20031201, end: 20040901
  4. XELODA [Concomitant]
     Indication: BREAST CANCER
     Dosage: 1500 MG, BID
     Dates: start: 20040901
  5. ADAVIN [Concomitant]
  6. OXYCODONE HCL [Concomitant]
  7. WELLBUTRIN [Concomitant]

REACTIONS (3)
  - DENTURE WEARER [None]
  - OSTEONECROSIS [None]
  - TOOTH EXTRACTION [None]
